FAERS Safety Report 20662336 (Version 2)
Quarter: 2022Q2

REPORT INFORMATION
  Report Type: Spontaneous
  Country: US (occurrence: US)
  Receive Date: 20220401
  Receipt Date: 20220628
  Transmission Date: 20220721
  Serious: No
  Sender: FDA-Public Use
  Company Number: US-BRISTOL-MYERS SQUIBB COMPANY-2022-011808

PATIENT
  Age: 68 Year
  Sex: Male

DRUGS (1)
  1. ORENCIA [Suspect]
     Active Substance: ABATACEPT
     Indication: Rheumatoid arthritis
     Dosage: EXPIRY DATE FOR BATCH ACA7396 IS 30-SEP-2023
     Route: 058
     Dates: start: 20220129, end: 202204

REACTIONS (2)
  - Abdominal pain upper [Unknown]
  - Pain [Not Recovered/Not Resolved]
